FAERS Safety Report 7119215-7 (Version None)
Quarter: 2010Q4

REPORT INFORMATION
  Report Type: 
  Country: None (occurrence: None)
  Receive Date: 20101123
  Receipt Date: 20101116
  Transmission Date: 20110411
  Serious: Yes (Other)
  Sender: FDA-Public Use
  Company Number: US-BAYER-201041728NA

PATIENT
  Age: 82 Year
  Sex: Male

DRUGS (1)
  1. AVELOX [Suspect]
     Indication: BRONCHITIS
     Dosage: TOTAL DAILY DOSE: 400 MG  UNIT DOSE: 400 MG
     Route: 048
     Dates: start: 20101111, end: 20101113

REACTIONS (4)
  - BLISTER [None]
  - HYPERSENSITIVITY [None]
  - OEDEMA MOUTH [None]
  - OROPHARYNGEAL BLISTERING [None]
